FAERS Safety Report 16601666 (Version 1)
Quarter: 2019Q3

REPORT INFORMATION
  Report Type: Spontaneous
  Country: CN (occurrence: CN)
  Receive Date: 20190719
  Receipt Date: 20190719
  Transmission Date: 20191004
  Serious: Yes (Other)
  Sender: FDA-Public Use
  Company Number: CN-SHIRE-CN201922869

PATIENT
  Age: 76 Year
  Sex: Male

DRUGS (1)
  1. HUMAN ALBUMIN [Suspect]
     Active Substance: ALBUMIN HUMAN
     Indication: BLOOD ALBUMIN DECREASED
     Dosage: 10 GRAM, 1X/DAY:QD
     Route: 042
     Dates: start: 20190627, end: 20190627

REACTIONS (4)
  - Eructation [Recovering/Resolving]
  - Infusion related reaction [Unknown]
  - Rash [Recovering/Resolving]
  - Palpitations [Recovering/Resolving]

NARRATIVE: CASE EVENT DATE: 20190627
